FAERS Safety Report 4924827-2 (Version None)
Quarter: 2006Q1

REPORT INFORMATION
  Report Type: 
  Country: None (occurrence: None)
  Receive Date: 20060127
  Receipt Date: 20051223
  Transmission Date: 20060701
  Serious: Yes (Other)
  Sender: FDA-Public Use
  Company Number: 2006001065

PATIENT
  Age: 90 Year
  Sex: Female
  Weight: 58.9676 kg

DRUGS (10)
  1. LYRICA [Suspect]
     Indication: POST HERPETIC NEURALGIA
     Dosage: 300 MG (100 MG, 3 IN 1 D), ORAL
     Route: 048
     Dates: start: 20051001
  2. GABAPENTIN [Suspect]
     Indication: ILL-DEFINED DISORDER
  3. AMIODARONE [Concomitant]
  4. DIGOXIN [Concomitant]
  5. BENAZEPRIL HYDROCHLORIDE [Concomitant]
  6. FUROSEMIDE [Concomitant]
  7. KLOR-CON [Concomitant]
  8. PREVACID [Concomitant]
  9. ACETYLSALICYLIC ACID SRT [Concomitant]
  10. CENTRUM SILVER (ASCORBIC ACID, CALCIUM, MINERALS NOS, RETINOL, TOCOPHE [Concomitant]

REACTIONS (1)
  - CONTUSION [None]
